FAERS Safety Report 11996343 (Version 3)
Quarter: 2016Q1

REPORT INFORMATION
  Report Type: Report from Study
  Country: HU (occurrence: HU)
  Receive Date: 20160203
  Receipt Date: 20160309
  Transmission Date: 20160526
  Serious: Yes (Other)
  Sender: FDA-Public Use
  Company Number: HU-ABBVIE-15P-076-1524665-00

PATIENT
  Age: 71 Year
  Sex: Male
  Weight: 73 kg

DRUGS (5)
  1. DUODOPA [Suspect]
     Active Substance: CARBIDOPA\LEVODOPA
     Dosage: MORNING DOSE: 6.5ML; CONTINUOUS DOSE: 5.5; EXTRA DOSE: 2ML
     Route: 050
  2. FOLIC ACID. [Concomitant]
     Active Substance: FOLIC ACID
     Indication: ANAEMIA
     Route: 048
     Dates: start: 20160111
  3. DUODOPA [Suspect]
     Active Substance: CARBIDOPA\LEVODOPA
     Indication: PARKINSON^S DISEASE
     Dosage: MORNING DOSE: 6.5ML; CONTINUOUS DOSE: 6.3-6.5ML/H;EXTRA DOSE: 2ML
     Route: 050
     Dates: start: 20140724, end: 201512
  4. FERRO FOLGAMMA [Concomitant]
     Indication: ANAEMIA
     Route: 048
     Dates: start: 20160111
  5. DUODOPA [Suspect]
     Active Substance: CARBIDOPA\LEVODOPA
     Dosage: MORNING: 7.5ML; CONTINUOUS DOSE: 6.1ML/H; EXTRA DOSE: 2ML
     Route: 050
     Dates: start: 201512

REACTIONS (10)
  - Fall [Recovering/Resolving]
  - Parkinson^s disease [Recovering/Resolving]
  - Fall [Recovering/Resolving]
  - Hallucination [Recovering/Resolving]
  - Colon cancer [Recovering/Resolving]
  - Gait disturbance [Not Recovered/Not Resolved]
  - Bradykinesia [Not Recovered/Not Resolved]
  - Weight decreased [Recovering/Resolving]
  - Aggression [Recovered/Resolved]
  - Drug ineffective [Recovering/Resolving]

NARRATIVE: CASE EVENT DATE: 201507
